FAERS Safety Report 5421704-8 (Version None)
Quarter: 2007Q3

REPORT INFORMATION
  Report Type: 
  Country: None (occurrence: None)
  Receive Date: 20070724
  Receipt Date: 20070301
  Transmission Date: 20080115
  Serious: Yes (Hospitalization)
  Sender: FDA-Public Use
  Company Number: 07-000484

PATIENT
  Age: 77 Year
  Sex: Female
  Weight: 75.3 kg

DRUGS (6)
  1. FEMHRT [Suspect]
     Indication: ATROPHIC VULVOVAGINITIS
     Dosage: 1 MG/5MCG, QD, ORAL
     Route: 048
     Dates: start: 20060201, end: 20070201
  2. FEMHRT [Suspect]
     Indication: VAGINAL PAIN
     Dosage: 1 MG/5MCG, QD, ORAL
     Route: 048
     Dates: start: 20060201, end: 20070201
  3. SEROQUEL /012709001/(UETIAPINE), 125 MG [Concomitant]
  4. SYNTHROID [Concomitant]
  5. PEPCID /00706001(FAMOTIDINE) [Concomitant]
  6. LYRICA [Concomitant]

REACTIONS (1)
  - PULMONARY EMBOLISM [None]
